FAERS Safety Report 15288817 (Version 1)
Quarter: 2018Q3

REPORT INFORMATION
  Report Type: Other
  Country: GB (occurrence: GB)
  Receive Date: 20180817
  Receipt Date: 20180817
  Transmission Date: 20181010
  Serious: Yes (Disabling, Other)
  Sender: FDA-Public Use
  Company Number: GB-MACLEODS PHARMACEUTICALS US LTD-MAC2018016361

PATIENT

DRUGS (3)
  1. METFORMIN HYDROCHLORIDE. [Concomitant]
     Active Substance: METFORMIN HYDROCHLORIDE
     Indication: PRODUCT USED FOR UNKNOWN INDICATION
     Dosage: UNK
     Route: 065
  2. GAVISCON [Concomitant]
     Active Substance: ALUMINUM HYDROXIDE\MAGNESIUM CARBONATE
     Indication: PRODUCT USED FOR UNKNOWN INDICATION
     Dosage: UNK
     Route: 065
  3. ARIPIPRAZOLE. [Suspect]
     Active Substance: ARIPIPRAZOLE
     Indication: SCHIZOPHRENIA
     Dosage: 400 MILLIGRAM
     Route: 030

REACTIONS (7)
  - Feeling abnormal [Recovered/Resolved]
  - Schizophrenia [Recovered/Resolved]
  - Withdrawal syndrome [Recovered/Resolved]
  - Thinking abnormal [Recovered/Resolved]
  - Choking sensation [Recovered/Resolved]
  - Dyspnoea [Recovered/Resolved]
  - Sensation of foreign body [Recovered/Resolved]
